FAERS Safety Report 5194736-5 (Version None)
Quarter: 2006Q4

REPORT INFORMATION
  Report Type: 
  Country: None (occurrence: None)
  Receive Date: 20061229
  Receipt Date: 20061226
  Transmission Date: 20070319
  Serious: Yes (Hospitalization)
  Sender: FDA-Public Use
  Company Number: FR-AVENTIS-200614558FR

PATIENT
  Age: 67 Year
  Sex: Female

DRUGS (1)
  1. LASILIX                            /00032601/ [Suspect]
     Route: 048

REACTIONS (6)
  - DEHYDRATION [None]
  - DEPRESSED LEVEL OF CONSCIOUSNESS [None]
  - DISTURBANCE IN ATTENTION [None]
  - HYPERNATRAEMIA [None]
  - ORAL INTAKE REDUCED [None]
  - SOMNOLENCE [None]
